FAERS Safety Report 4608613-9 (Version None)
Quarter: 2005Q1

REPORT INFORMATION
  Report Type: 
  Country: None (occurrence: None)
  Receive Date: 20050315
  Receipt Date: 20050303
  Transmission Date: 20050727
  Serious: Yes (Hospitalization)
  Sender: FDA-Public Use
  Company Number: PHBS2005BE03214

PATIENT
  Age: 16 Year
  Sex: Female

DRUGS (2)
  1. RITALIN [Suspect]
     Indication: ATTENTION DEFICIT/HYPERACTIVITY DISORDER
     Dosage: UNK, UNK
     Route: 048
  2. METHYLENEDIOXYMETHAMPHETAMINE [Suspect]
     Dosage: 20 DF, ONCE/SINGLE
     Route: 048
     Dates: start: 20050122, end: 20050122

REACTIONS (3)
  - DRUG ABUSER [None]
  - HYPERTHERMIA [None]
  - POISONING [None]
